FAERS Safety Report 17271880 (Version 2)
Quarter: 2021Q1

REPORT INFORMATION
  Report Type: Report from Study
  Country: US (occurrence: US)
  Receive Date: 20200115
  Receipt Date: 20210310
  Transmission Date: 20210419
  Serious: Yes (Hospitalization)
  Sender: FDA-Public Use
  Company Number: US-BAUSCH-BL-2020-000853

PATIENT
  Age: 69 Year
  Sex: Female

DRUGS (18)
  1. INSULIN [Concomitant]
     Active Substance: INSULIN NOS
     Indication: PRODUCT USED FOR UNKNOWN INDICATION
  2. MIRALAX [Concomitant]
     Active Substance: POLYETHYLENE GLYCOL 3350
     Indication: PRODUCT USED FOR UNKNOWN INDICATION
     Dosage: MIX POWDER IN 4 TO 8 OZ OF WATER, JUICE, COFFEE OR TEA
     Route: 048
  3. FERROUS SULFATE. [Concomitant]
     Active Substance: FERROUS SULFATE
     Indication: PRODUCT USED FOR UNKNOWN INDICATION
     Route: 048
  4. NIZORAL [Concomitant]
     Active Substance: KETOCONAZOLE
     Indication: PRODUCT USED FOR UNKNOWN INDICATION
     Dosage: APPLY ON FOREHEAD DAILY
     Route: 061
  5. NIZORAL [Concomitant]
     Active Substance: KETOCONAZOLE
     Dosage: APPLY TO SCALP AND FACE AND LATHER AND LEAVE IN PLACE FOR 5?10 MINS, THEN RINSE3
     Route: 061
  6. LASIX [Concomitant]
     Active Substance: FUROSEMIDE
     Indication: PRODUCT USED FOR UNKNOWN INDICATION
     Dosage: TAKE ONE?HALF TABLET
     Route: 048
  7. ROXICODONE [Concomitant]
     Active Substance: OXYCODONE HYDROCHLORIDE
     Indication: PRODUCT USED FOR UNKNOWN INDICATION
  8. CRESTOR [Concomitant]
     Active Substance: ROSUVASTATIN CALCIUM
     Indication: PRODUCT USED FOR UNKNOWN INDICATION
     Route: 048
  9. ZINCATE [Concomitant]
     Indication: PRODUCT USED FOR UNKNOWN INDICATION
     Dosage: 220 (50) MG
     Route: 048
  10. XIFAXAN [Suspect]
     Active Substance: RIFAXIMIN
     Indication: LIVER DISORDER
     Route: 048
  11. ELOCON [Concomitant]
     Active Substance: MOMETASONE FUROATE
     Indication: PRODUCT USED FOR UNKNOWN INDICATION
     Dosage: APPLY TO THE GENITAL (VULVA) AND ANAL AREA (GLUTEAL CLEFT) DAILY
  12. BASAGLAR KWIKPEN U?100 INSULIN [Concomitant]
     Indication: DIABETES MELLITUS
     Dosage: INJECT 55 UNITS UNDER THE SKIN NIGHTLY. 60 UNITS AT NIGHT?100 UNITS/ML
  13. LASIX [Concomitant]
     Active Substance: FUROSEMIDE
     Route: 048
  14. TEMOVATE [Concomitant]
     Active Substance: CLOBETASOL PROPIONATE
     Indication: PRURITUS
     Dosage: APPLY UP TO TWICE DAILY TO SPOT ON BACK UP AS NEEDED
     Route: 061
  15. NOVOLOG [Concomitant]
     Active Substance: INSULIN ASPART
     Indication: PRODUCT USED FOR UNKNOWN INDICATION
     Dosage: 22 UNITS BEFORE BREAKFAST AND LUNCH AND 28 UNITS BEFORE SUPPER?100 UNITS/ML
  16. LACTULOSE. [Concomitant]
     Active Substance: LACTULOSE
     Indication: PRODUCT USED FOR UNKNOWN INDICATION
     Dosage: TAKE 30 ML (20 G) TOTAL
     Route: 048
  17. PRILOSEC [Concomitant]
     Active Substance: OMEPRAZOLE MAGNESIUM
     Indication: PRODUCT USED FOR UNKNOWN INDICATION
     Route: 048
  18. ROPINIROLE HCL [Concomitant]
     Active Substance: ROPINIROLE HYDROCHLORIDE
     Indication: PRODUCT USED FOR UNKNOWN INDICATION
     Dosage: 2 HOURS PRIOR TO SLEEP

REACTIONS (2)
  - Hospitalisation [Unknown]
  - Inability to afford medication [Unknown]
